FAERS Safety Report 13962906 (Version 2)
Quarter: 2017Q4

REPORT INFORMATION
  Report Type: Spontaneous
  Country: GB (occurrence: GB)
  Receive Date: 20170913
  Receipt Date: 20171025
  Transmission Date: 20180320
  Serious: Yes (Other)
  Sender: FDA-Public Use
  Company Number: GB-ACCORD-058246

PATIENT
  Age: 11 Year
  Sex: Female

DRUGS (2)
  1. VINBLASTINE [Suspect]
     Active Substance: VINBLASTINE
     Indication: SOFT TISSUE SARCOMA
     Dates: start: 20170123
  2. METHOTREXATE. [Suspect]
     Active Substance: METHOTREXATE
     Indication: SOFT TISSUE SARCOMA
     Dates: start: 20170123

REACTIONS (2)
  - Off label use [Unknown]
  - Malignant neoplasm progression [Unknown]

NARRATIVE: CASE EVENT DATE: 201708
